FAERS Safety Report 23721429 (Version 1)
Quarter: 2024Q2

REPORT INFORMATION
  Report Type: Spontaneous
  Country: SA (occurrence: SA)
  Receive Date: 20240409
  Receipt Date: 20240409
  Transmission Date: 20240716
  Serious: Yes (Hospitalization)
  Sender: FDA-Public Use
  Company Number: SA-AMNEAL PHARMACEUTICALS-2024-AMRX-01145

PATIENT
  Age: 20 Year
  Sex: Female

DRUGS (1)
  1. AMLODIPINE BESYLATE [Suspect]
     Active Substance: AMLODIPINE BESYLATE
     Indication: Product used for unknown indication
     Dosage: 5 MILLIGRAM 58 TABLETS (290 MG)
     Route: 065

REACTIONS (4)
  - Toxicity to various agents [Recovered/Resolved]
  - Cardiac failure [Recovered/Resolved]
  - Overdose [Unknown]
  - Hypotension [Recovered/Resolved]
